FAERS Safety Report 18081526 (Version 6)
Quarter: 2022Q2

REPORT INFORMATION
  Report Type: Report from Study
  Country: US (occurrence: US)
  Receive Date: 20200728
  Receipt Date: 20220402
  Transmission Date: 20220721
  Serious: No
  Sender: FDA-Public Use
  Company Number: NVSC2020US208681

PATIENT
  Sex: Female

DRUGS (2)
  1. ENTRESTO [Suspect]
     Active Substance: SACUBITRIL\VALSARTAN
     Indication: Cardiac failure
     Dosage: 24.26 MG, BID
     Route: 048
     Dates: start: 2020
  2. ENTRESTO [Suspect]
     Active Substance: SACUBITRIL\VALSARTAN
     Dosage: 50 MG, BID (24.26MG)
     Route: 048

REACTIONS (8)
  - Weight increased [Recovering/Resolving]
  - Weight decreased [Recovering/Resolving]
  - Diplopia [Unknown]
  - Limb injury [Recovering/Resolving]
  - Back pain [Unknown]
  - Pain [Unknown]
  - Contusion [Unknown]
  - Fall [Unknown]
